FAERS Safety Report 24886366 (Version 2)
Quarter: 2025Q2

REPORT INFORMATION
  Report Type: Report from Study
  Country: US (occurrence: US)
  Receive Date: 20250126
  Receipt Date: 20250527
  Transmission Date: 20250716
  Serious: Yes (Death, Hospitalization, Other)
  Sender: ARDELYX
  Company Number: US-ARDELYX-2025ARDX000293

PATIENT
  Age: 64 Year
  Sex: Male

DRUGS (3)
  1. XPHOZAH [Suspect]
     Active Substance: TENAPANOR HYDROCHLORIDE
     Indication: Chronic kidney disease
     Route: 048
  2. AURYXIA [Concomitant]
     Active Substance: TETRAFERRIC TRICITRATE DECAHYDRATE
     Indication: Hyperphosphataemia
     Route: 065
  3. NOVOLOG [Concomitant]
     Active Substance: INSULIN ASPART
     Indication: Diabetes mellitus
     Route: 065

REACTIONS (2)
  - Septic shock [Fatal]
  - Localised infection [Unknown]

NARRATIVE: CASE EVENT DATE: 20241227
